FAERS Safety Report 15209665 (Version 4)
Quarter: 2018Q3

REPORT INFORMATION
  Report Type: Report from Study
  Country: US (occurrence: US)
  Receive Date: 20180727
  Receipt Date: 20180824
  Transmission Date: 20181010
  Serious: Yes (Other)
  Sender: FDA-Public Use
  Company Number: US-MALLINCKRODT-T201803011

PATIENT
  Age: 4 Month
  Sex: Female
  Weight: 5 kg

DRUGS (3)
  1. REPOSITORY CORTICOTROPIN INJECTION [Suspect]
     Active Substance: CORTICOTROPIN
     Indication: EPILEPSY
     Dosage: 0.3 ML/24 UNITS, TWICE DAILY
     Route: 030
     Dates: start: 20180716
  2. REPOSITORY CORTICOTROPIN INJECTION [Suspect]
     Active Substance: CORTICOTROPIN
     Indication: INFANTILE SPASMS
     Dosage: 0.03 ML, BID, FOR TWO WEEKS
     Route: 030
     Dates: start: 20180712
  3. REPOSITORY CORTICOTROPIN INJECTION [Suspect]
     Active Substance: CORTICOTROPIN
     Dosage: 0.6 ML
     Route: 030

REACTIONS (7)
  - Condition aggravated [Unknown]
  - Irritability [Unknown]
  - Gastrooesophageal reflux disease [Unknown]
  - Drug ineffective [Unknown]
  - Insomnia [Unknown]
  - Diarrhoea [Unknown]
  - Weight increased [Unknown]

NARRATIVE: CASE EVENT DATE: 20180716
